FAERS Safety Report 15543741 (Version 2)
Quarter: 2019Q4

REPORT INFORMATION
  Report Type: Report from Study
  Country: GB (occurrence: GB)
  Receive Date: 20181023
  Receipt Date: 20191121
  Transmission Date: 20200122
  Serious: Yes (Hospitalization)
  Sender: FDA-Public Use
  Company Number: GB-PFIZER INC-2018396365

PATIENT
  Age: 53 Year
  Sex: Male
  Weight: 92.8 kg

DRUGS (6)
  1. TRIMETHOPRIM. [Concomitant]
     Active Substance: TRIMETHOPRIM
     Indication: URINARY TRACT INFECTION
     Dosage: UNK
     Route: 048
     Dates: start: 20180915, end: 20180917
  2. SRA737 [Suspect]
     Active Substance: INVESTIGATIONAL PRODUCT
     Dosage: 500 MG DAILY ON DAYS 2,3,9,10,16 AND 17 OF EACH 28 DAY CYCLE
     Route: 048
     Dates: start: 20180912
  3. GEMCITABINE HYDROCHLORIDE. [Suspect]
     Active Substance: GEMCITABINE HYDROCHLORIDE
     Indication: TRANSITIONAL CELL CARCINOMA
     Dosage: 150 MG/M2, CYCLIC  ON DAYS 1, 8 AND 15 OF EACH 28-DAY CYCLE
     Route: 042
     Dates: start: 20180911
  4. IBUPROFEN. [Suspect]
     Active Substance: IBUPROFEN
     Indication: BACK PAIN
     Dosage: 400 MG, 2X/DAY
     Route: 048
     Dates: start: 20180812, end: 20180918
  5. SRA737 [Suspect]
     Active Substance: INVESTIGATIONAL PRODUCT
     Indication: TRANSITIONAL CELL CARCINOMA
     Dosage: 500MG SINGLE DAILY ON DAY 7
     Route: 048
     Dates: start: 20180904, end: 20180904
  6. IBUPROFEN. [Suspect]
     Active Substance: IBUPROFEN
     Indication: GROIN PAIN

REACTIONS (1)
  - Acute kidney injury [Recovering/Resolving]

NARRATIVE: CASE EVENT DATE: 20180918
